FAERS Safety Report 4472917-3 (Version None)
Quarter: 2004Q4

REPORT INFORMATION
  Report Type: 
  Country: None (occurrence: None)
  Receive Date: 20041013
  Receipt Date: 20041005
  Transmission Date: 20050328
  Serious: Yes (Death)
  Sender: FDA-Public Use
  Company Number: US-JNJFOC-20041002567

PATIENT
  Age: 48 Year
  Sex: Male
  Weight: 72.58 kg

DRUGS (2)
  1. HALDOL [Suspect]
     Indication: SCHIZOPHRENIA
     Dosage: (5MG TAKEN AT NIGHT)
     Route: 065
  2. CLOZAPINE [Suspect]
     Indication: SCHIZOPHRENIA
     Route: 049
     Dates: start: 19960601, end: 20040801

REACTIONS (2)
  - HEART RATE IRREGULAR [None]
  - HEAT STROKE [None]
